FAERS Safety Report 6293537-4 (Version None)
Quarter: 2009Q3

REPORT INFORMATION
  Report Type: 
  Country: None (occurrence: None)
  Receive Date: 20090803
  Receipt Date: 20090710
  Transmission Date: 20100115
  Serious: No
  Sender: FDA-Public Use
  Company Number: US-B.I. PHARMACEUTICALS,INC./RIDGEFIELD-2009-BP-08209BP

PATIENT
  Age: 65 Year
  Sex: Male

DRUGS (4)
  1. FLOMAX [Suspect]
     Indication: BENIGN PROSTATIC HYPERPLASIA
     Dosage: 0.4 MG
     Route: 048
     Dates: start: 20090601, end: 20090611
  2. LIPITOR [Concomitant]
  3. SINGULAIR [Concomitant]
  4. ASPIRIN [Concomitant]

REACTIONS (5)
  - FATIGUE [None]
  - NIGHT SWEATS [None]
  - PAIN [None]
  - PYREXIA [None]
  - SEMEN VOLUME DECREASED [None]
